FAERS Safety Report 7962211-8 (Version None)
Quarter: 2011Q4

REPORT INFORMATION
  Report Type: 
  Country: None (occurrence: None)
  Receive Date: 20111207
  Receipt Date: 20111128
  Transmission Date: 20120403
  Serious: Yes (Hospitalization)
  Sender: FDA-Public Use
  Company Number: PHHY2011GB105574

PATIENT
  Age: 48 Year
  Sex: Female

DRUGS (1)
  1. VOLTAREN [Suspect]
     Indication: BACK PAIN
     Dosage: 50 MG, TID
     Route: 048

REACTIONS (9)
  - CONJUNCTIVAL PALLOR [None]
  - DIARRHOEA [None]
  - LARGE INTESTINAL ULCER [None]
  - DIVERTICULUM INTESTINAL [None]
  - CROHN'S DISEASE [None]
  - COLONIC STENOSIS [None]
  - ABDOMINAL PAIN [None]
  - COLITIS [None]
  - HAEMOGLOBIN DECREASED [None]
